FAERS Safety Report 13952803 (Version 1)
Quarter: 2017Q3

REPORT INFORMATION
  Report Type: Spontaneous
  Country: US (occurrence: US)
  Receive Date: 20170911
  Receipt Date: 20170911
  Transmission Date: 20171128
  Serious: Yes (Other)
  Sender: FDA-Public Use
  Company Number: US-TEVA-760262USA

PATIENT
  Sex: Male

DRUGS (4)
  1. NORCO [Concomitant]
  2. FENTANYL. [Suspect]
     Active Substance: FENTANYL
     Indication: BACK PAIN
     Route: 062
  3. FENTANYL. [Suspect]
     Active Substance: FENTANYL
     Route: 062
  4. FENTANYL. [Suspect]
     Active Substance: FENTANYL
     Route: 062

REACTIONS (1)
  - Drug dependence [Unknown]
